FAERS Safety Report 5325836-4 (Version None)
Quarter: 2007Q2

REPORT INFORMATION
  Report Type: 
  Country: None (occurrence: None)
  Receive Date: 20070510
  Receipt Date: 20070424
  Transmission Date: 20071010
  Serious: Yes (Other)
  Sender: FDA-Public Use
  Company Number: 8023568

PATIENT
  Age: 42 Year
  Sex: Female
  Weight: 90 kg

DRUGS (11)
  1. KEPPRA [Suspect]
     Indication: COMPLEX PARTIAL SEIZURES
     Dosage: 1.5 G 1/D PO
     Route: 048
     Dates: start: 20040217, end: 20040317
  2. KEPPRA [Suspect]
     Indication: GRAND MAL CONVULSION
     Dosage: 1.5 G 1/D PO
     Route: 048
     Dates: start: 20040217, end: 20040317
  3. KEPPRA [Suspect]
     Indication: COMPLEX PARTIAL SEIZURES
     Dosage: 2 G 1/D PO
     Route: 048
     Dates: start: 20040317, end: 20040920
  4. KEPPRA [Suspect]
     Indication: GRAND MAL CONVULSION
     Dosage: 2 G 1/D PO
     Route: 048
     Dates: start: 20040317, end: 20040920
  5. KEPPRA [Suspect]
     Indication: COMPLEX PARTIAL SEIZURES
     Dosage: 3 G 1/D PO
     Route: 048
     Dates: start: 20040920
  6. KEPPRA [Suspect]
     Indication: GRAND MAL CONVULSION
     Dosage: 3 G 1/D PO
     Route: 048
     Dates: start: 20040920
  7. OXCARBAZEPINE [Concomitant]
  8. OXCARBAZEPINE [Concomitant]
  9. OXCARBAZEPINE [Concomitant]
  10. METOPROLOL SUCCINATE [Concomitant]
  11. PANTOZOL /01263202/ [Concomitant]

REACTIONS (3)
  - GRAND MAL CONVULSION [None]
  - HEMIPARESIS [None]
  - POSTICTAL STATE [None]
